FAERS Safety Report 10176089 (Version 2)
Quarter: 2014Q2

REPORT INFORMATION
  Report Type: Spontaneous
  Country: US (occurrence: US)
  Receive Date: 20140516
  Receipt Date: 20140630
  Transmission Date: 20141212
  Serious: No
  Sender: FDA-Public Use
  Company Number: US-PFIZER INC-2014131642

PATIENT
  Age: 82 Year
  Sex: Female
  Weight: 59.41 kg

DRUGS (5)
  1. LYRICA [Suspect]
     Indication: NEUROPATHY PERIPHERAL
     Dosage: 50 MG, ONE TAB AT NIGHT
     Route: 048
     Dates: start: 20140312, end: 20140430
  2. LYRICA [Suspect]
     Dosage: 75 MG, ONE TAB AT NIGHT
     Route: 048
     Dates: start: 20140503, end: 20140510
  3. LYRICA [Suspect]
     Dosage: 50 MG, ONCE AT NIGHT
     Route: 048
     Dates: start: 20140510, end: 20140528
  4. XARELTO [Concomitant]
     Dosage: 20 MG, UNK
  5. METOPROLOL [Concomitant]
     Dosage: 25 MG, UNK

REACTIONS (3)
  - Drug ineffective [Recovered/Resolved]
  - Drug intolerance [Recovered/Resolved]
  - Somnolence [Recovered/Resolved]
